FAERS Safety Report 4407116-4 (Version None)
Quarter: 2004Q3

REPORT INFORMATION
  Report Type: 
  Country: None (occurrence: None)
  Receive Date: 20040721
  Receipt Date: 20040707
  Transmission Date: 20050211
  Serious: Yes (Hospitalization)
  Sender: FDA-Public Use
  Company Number: DSA_80671_2004

PATIENT
  Age: 36 Year
  Sex: Female

DRUGS (10)
  1. XYREM [Suspect]
     Indication: CATAPLEXY
     Dosage: 4.5 G TWICE NIGHTLY PO
     Route: 048
     Dates: start: 20040305, end: 20040602
  2. XYREM [Suspect]
     Indication: NARCOLEPSY
     Dosage: 4.5 G TWICE NIGHTLY PO
     Route: 048
     Dates: start: 20040305, end: 20040602
  3. PROVIGIL [Concomitant]
  4. RITALIN [Concomitant]
  5. NEURONTIN [Concomitant]
  6. INNOPRAN [Concomitant]
  7. ZOLOFT [Concomitant]
  8. WELLBUTRIN [Concomitant]
  9. SYNTHROID [Concomitant]
  10. INHALER [Concomitant]

REACTIONS (11)
  - BLOOD PRESSURE DECREASED [None]
  - COMA [None]
  - DRUG INEFFECTIVE [None]
  - HALLUCINATION [None]
  - HEART RATE DECREASED [None]
  - MIGRAINE [None]
  - OXYGEN SATURATION DECREASED [None]
  - RESPIRATORY DISORDER [None]
  - SLEEP PARALYSIS [None]
  - SUICIDAL IDEATION [None]
  - THINKING ABNORMAL [None]
